FAERS Safety Report 10064793 (Version 1)
Quarter: 2014Q1

REPORT INFORMATION
  Report Type: Spontaneous
  Country: US (occurrence: None)
  Receive Date: 20140328
  Receipt Date: 20140328
  Transmission Date: 20141002
  Serious: Yes (Other)
  Sender: FDA-Public Use
  Company Number: 1000052958

PATIENT
  Age: 49 Year
  Sex: Female

DRUGS (4)
  1. LINZESS (LINACLOTIDE) (290 MICROGRAM, CAPSULES) [Suspect]
     Indication: IRRITABLE BOWEL SYNDROME
     Route: 048
     Dates: start: 201401, end: 201401
  2. CITALOPRAM (CITALOPRAM HYDROBROMIDE) (CITALOPRAM HYDROBROMIDE) [Concomitant]
  3. NEURONTIN (GABAPENTIN) (GABAPENTIN) [Concomitant]
  4. PREVACID (LANSOPRAZOLE) (LANSOPRAZOLE) [Concomitant]

REACTIONS (4)
  - Dizziness [None]
  - Feeling jittery [None]
  - Confusional state [None]
  - Feeling abnormal [None]
